FAERS Safety Report 18181317 (Version 5)
Quarter: 2020Q4

REPORT INFORMATION
  Report Type: Spontaneous
  Country: US (occurrence: US)
  Receive Date: 20200821
  Receipt Date: 20201228
  Transmission Date: 20210113
  Serious: No
  Sender: FDA-Public Use
  Company Number: US-GLAXOSMITHKLINE-US2020AMR167305

PATIENT
  Sex: Female

DRUGS (2)
  1. ZEJULA [Suspect]
     Active Substance: NIRAPARIB
     Indication: OVARIAN CANCER
     Dosage: 200 MG, QD IN THE AM WITH BREAKFAST
     Route: 048
     Dates: start: 20200811
  2. ZEJULA [Suspect]
     Active Substance: NIRAPARIB
     Dosage: 200 MG, QD

REACTIONS (14)
  - Insomnia [Unknown]
  - Adverse drug reaction [Unknown]
  - Abdominal pain [Unknown]
  - Diarrhoea [Not Recovered/Not Resolved]
  - Scar [Unknown]
  - Dysphonia [Unknown]
  - Constipation [Not Recovered/Not Resolved]
  - Dry throat [Unknown]
  - Seasonal allergy [Unknown]
  - Abdominal pain upper [Unknown]
  - Vaginal haemorrhage [Unknown]
  - Headache [Recovering/Resolving]
  - Dysgeusia [Unknown]
  - Nausea [Not Recovered/Not Resolved]
